FAERS Safety Report 19687567 (Version 3)
Quarter: 2021Q3

REPORT INFORMATION
  Report Type: Report from Study
  Country: None (occurrence: CH)
  Receive Date: 20210812
  Receipt Date: 20210907
  Transmission Date: 20211014
  Serious: Yes (Hospitalization)
  Sender: FDA-Public Use
  Company Number: CH-ABBVIE-21K-151-4033285-00

PATIENT
  Age: 77 Year
  Sex: Female
  Weight: 57 kg

DRUGS (5)
  1. DUODOPA [Suspect]
     Active Substance: CARBIDOPA\LEVODOPA
     Dosage: MD: 9.0 ML, CRD: 4.0 ML/H, CRN: 0 ML/H, ED: 1.5 ML
     Route: 050
     Dates: start: 20210217, end: 20210311
  2. DUODOPA [Suspect]
     Active Substance: CARBIDOPA\LEVODOPA
     Dosage: MD: 9.0 ML, CRD: 3.9 ML/H, CRN: 0 ML/H, ED: 1.5 ML / 1 CASSETTE?PER DAY
     Route: 050
     Dates: start: 20210511
  3. DUODOPA [Suspect]
     Active Substance: CARBIDOPA\LEVODOPA
     Indication: PARKINSON^S DISEASE
     Dosage: MD: 6.0 ML, CRD: 3.6 ML/H, CRN: 0 ML/H, ED: 1.0 ML
     Route: 050
     Dates: start: 20210125, end: 20210203
  4. DUODOPA [Suspect]
     Active Substance: CARBIDOPA\LEVODOPA
     Dosage: MD: 9.0 ML, CRD: 4.3 ML/H, CRN: 0 ML/H, ED: 1.5 ML
     Route: 050
     Dates: start: 20210203, end: 20210208
  5. DUODOPA [Suspect]
     Active Substance: CARBIDOPA\LEVODOPA
     Dosage: MD: 9.0 ML, CRD: 4.4 ML/H, CRN: 0 ML/H, ED: 1.5 ML
     Route: 050
     Dates: start: 20210208, end: 20210217

REACTIONS (2)
  - Limb injury [Not Recovered/Not Resolved]
  - Fall [Not Recovered/Not Resolved]

NARRATIVE: CASE EVENT DATE: 202108
